FAERS Safety Report 11324005 (Version 1)
Quarter: 2015Q3

REPORT INFORMATION
  Report Type: Spontaneous
  Country: US (occurrence: US)
  Receive Date: 20150730
  Receipt Date: 20150730
  Transmission Date: 20151125
  Serious: Yes (Other)
  Sender: FDA-Public Use
  Company Number: US-BRACCO-012412

PATIENT

DRUGS (1)
  1. LIQUID POLIBAR PLUS [Suspect]
     Active Substance: BARIUM SULFATE
     Indication: DIAGNOSTIC PROCEDURE
     Route: 042

REACTIONS (2)
  - No adverse event [Unknown]
  - Incorrect route of drug administration [Unknown]
